FAERS Safety Report 7563197-0 (Version None)
Quarter: 2011Q2

REPORT INFORMATION
  Report Type: 
  Country: None (occurrence: None)
  Receive Date: 20110615
  Receipt Date: 20110610
  Transmission Date: 20111010
  Serious: Yes (Other)
  Sender: FDA-Public Use
  Company Number: 2011SP027240

PATIENT
  Age: 25 Year
  Sex: Female
  Weight: 123.832 kg

DRUGS (1)
  1. IMPLANON [Suspect]
     Indication: CONTRACEPTION
     Dates: start: 20100101

REACTIONS (4)
  - DEVICE DAMAGE [None]
  - EPISTAXIS [None]
  - ALOPECIA [None]
  - DEVICE DISLOCATION [None]
